FAERS Safety Report 5520895-8 (Version None)
Quarter: 2007Q4

REPORT INFORMATION
  Report Type: 
  Country: None (occurrence: None)
  Receive Date: 20071119
  Receipt Date: 20071115
  Transmission Date: 20080405
  Serious: Yes (Disabling)
  Sender: FDA-Public Use
  Company Number: B0495875A

PATIENT
  Age: 69 Year
  Sex: Female

DRUGS (2)
  1. CLENIL [Suspect]
     Indication: ASTHMA
     Dosage: 100UG PER DAY
     Route: 055
     Dates: start: 20070829, end: 20071015
  2. ALBUTEROL [Concomitant]
     Indication: ASTHMA
     Dosage: 100UG PER DAY
     Route: 055
     Dates: start: 19920101

REACTIONS (3)
  - ASTHMA [None]
  - DYSPNOEA [None]
  - WHEEZING [None]
